FAERS Safety Report 15379091 (Version 1)
Quarter: 2018Q3

REPORT INFORMATION
  Report Type: Spontaneous
  Country: US (occurrence: US)
  Receive Date: 20180906
  Receipt Date: 20180906
  Transmission Date: 20181010
  Serious: Yes (Life-Threatening, Hospitalization, Disabling)
  Sender: FDA-Public Use
  Company Number: None

PATIENT
  Age: 72 Year
  Sex: Female
  Weight: 63.5 kg

DRUGS (12)
  1. ATORVASTATIN 40MG [Concomitant]
     Active Substance: ATORVASTATIN
  2. BISOFUM/HCT 5?6.25 MG [Concomitant]
  3. FERROUS SULFATE. [Concomitant]
     Active Substance: FERROUS SULFATE
  4. OMEPRAZOLE 20 MG [Concomitant]
     Active Substance: OMEPRAZOLE
  5. VITAMIN B12 [Concomitant]
     Active Substance: CYANOCOBALAMIN
  6. VALSARTAN TABLETS, 40MG; SOLCO HEALTHCARE US, LLC [Suspect]
     Active Substance: VALSARTAN
     Indication: HYPERTENSION
     Dosage: ?          QUANTITY:1 TABLIET ;OTHER FREQUENCY:ONCE DAILY;?
     Route: 048
     Dates: end: 20180819
  7. FLUOXETINE [Concomitant]
     Active Substance: FLUOXETINE HYDROCHLORIDE
  8. MULTI?VIT [Concomitant]
     Active Substance: VITAMINS
  9. METFORMIN  500MG [Concomitant]
     Active Substance: METFORMIN HYDROCHLORIDE
  10. ANASTROZOLE. [Concomitant]
     Active Substance: ANASTROZOLE
  11. D [Concomitant]
  12. ASPIRIN 81MG [Concomitant]
     Active Substance: ASPIRIN

REACTIONS (1)
  - Breast cancer stage II [None]

NARRATIVE: CASE EVENT DATE: 20180410
